FAERS Safety Report 5924192-8 (Version None)
Quarter: 2008Q4

REPORT INFORMATION
  Report Type: 
  Country: None (occurrence: None)
  Receive Date: 20081020
  Receipt Date: 20081009
  Transmission Date: 20090506
  Serious: Yes (Disabling, Other)
  Sender: FDA-Public Use
  Company Number: CA-ELI_LILLY_AND_COMPANY-CA200803005852

PATIENT
  Age: 64 Year
  Sex: Female

DRUGS (16)
  1. FORTEO [Suspect]
     Indication: OSTEOPOROSIS
     Dosage: 20 UG, DAILY (1/D)
     Route: 058
     Dates: start: 20070215, end: 20070424
  2. FORTEO [Suspect]
     Dosage: 20 MG, DAILY (1/D)
     Route: 058
     Dates: start: 20070508, end: 20080901
  3. PREDNISONE [Concomitant]
  4. ENTROPHEN [Concomitant]
  5. DOXEPIN HCL [Concomitant]
     Dates: end: 20080101
  6. DOXEPIN HCL [Concomitant]
     Dosage: 10 MG, 2/D
     Dates: start: 20080101
  7. SIBELIUM [Concomitant]
  8. FLONASE [Concomitant]
  9. GEMFIBROZIL [Concomitant]
  10. RABEPRAZOLE SODIUM [Concomitant]
  11. MIRAPEX [Concomitant]
  12. CALCIUM [Concomitant]
  13. VITAMIN D [Concomitant]
  14. MAGNESIUM SULFATE [Concomitant]
  15. VITALUX [Concomitant]
  16. VITAMIN B COMPLEX CAP [Concomitant]

REACTIONS (4)
  - FEELING ABNORMAL [None]
  - FRACTURE NONUNION [None]
  - MIGRAINE [None]
  - PUBIC RAMI FRACTURE [None]
